FAERS Safety Report 23644826 (Version 1)
Quarter: 2024Q1

REPORT INFORMATION
  Report Type: Spontaneous
  Country: US (occurrence: None)
  Receive Date: 20240317
  Receipt Date: 20240317
  Transmission Date: 20240410
  Serious: Yes (Other)
  Sender: FDA-Public Use
  Company Number: None

PATIENT
  Age: 48 Year
  Sex: Female
  Weight: 64.35 kg

DRUGS (6)
  1. XANAX [Suspect]
     Active Substance: ALPRAZOLAM
     Indication: Menopausal symptoms
     Dosage: OTHER QUANTITY : 1 TABLET(S);?FREQUENCY : 3 TIMES A DAY;?
     Route: 048
  2. XANAX [Suspect]
     Active Substance: ALPRAZOLAM
     Indication: Anxiety
  3. XANAX [Suspect]
     Active Substance: ALPRAZOLAM
     Indication: Palpitations
  4. ATIVAN [Suspect]
     Active Substance: LORAZEPAM
     Indication: Menopausal symptoms
     Dosage: OTHER QUANTITY : 1 TABLET(S);?FREQUENCY : 3 TIMES A DAY;?
     Route: 048
  5. ATIVAN [Suspect]
     Active Substance: LORAZEPAM
     Indication: Anxiety
  6. ATIVAN [Suspect]
     Active Substance: LORAZEPAM
     Indication: Palpitations

REACTIONS (15)
  - Anxiety [None]
  - Nausea [None]
  - Muscle tightness [None]
  - Muscle twitching [None]
  - Blood pressure increased [None]
  - Tachycardia [None]
  - Drug dependence [None]
  - Blood oestrogen increased [None]
  - Progesterone decreased [None]
  - Vitamin D decreased [None]
  - Muscle contractions involuntary [None]
  - Cognitive disorder [None]
  - Depersonalisation/derealisation disorder [None]
  - Derealisation [None]
  - Insomnia [None]

NARRATIVE: CASE EVENT DATE: 20200703
